FAERS Safety Report 19742367 (Version 7)
Quarter: 2021Q4

REPORT INFORMATION
  Report Type: Report from Study
  Country: KR (occurrence: KR)
  Receive Date: 20210825
  Receipt Date: 20211212
  Transmission Date: 20220304
  Serious: Yes (Death)
  Sender: FDA-Public Use
  Company Number: NVSC2021KR190987

PATIENT
  Age: 74 Year
  Sex: Female
  Weight: 63.3 kg

DRUGS (36)
  1. RIBOCICLIB [Suspect]
     Active Substance: RIBOCICLIB
     Indication: Hormone receptor positive HER2 negative breast cancer
     Dosage: 600 MG
     Route: 048
     Dates: start: 20210615, end: 20210728
  2. MORPHINE SULFATE [Concomitant]
     Active Substance: MORPHINE SULFATE
     Indication: Cancer pain
     Dosage: 3 MG
     Route: 065
     Dates: start: 20210615, end: 20210616
  3. PROPACETAMOL HYDROCHLORIDE [Concomitant]
     Active Substance: PROPACETAMOL HYDROCHLORIDE
     Indication: Pyrexia
     Dosage: 1 G
     Route: 065
     Dates: start: 20210615, end: 20210621
  4. TAZOPERAN [Concomitant]
     Indication: Urinary tract infection
     Dosage: 13.5 G
     Route: 065
     Dates: start: 20210614, end: 20210617
  5. TAZOPERAN [Concomitant]
     Indication: Prophylaxis
     Dosage: 4.5 G
     Route: 065
     Dates: start: 20210730
  6. ACETYLCYSTEINE [Concomitant]
     Active Substance: ACETYLCYSTEINE
     Indication: Prophylaxis
     Dosage: 400 MG
     Route: 065
     Dates: start: 20210614, end: 20210620
  7. CACEPIN [Concomitant]
     Indication: Insomnia
     Dosage: 12.5 MG
     Route: 065
     Dates: start: 20210616, end: 20210620
  8. LACTULOSE [Concomitant]
     Active Substance: LACTULOSE
     Indication: Constipation
     Dosage: 30 ML
     Route: 065
     Dates: start: 20210619, end: 20210619
  9. FEROBA-YOU [Concomitant]
     Indication: Anaemia
     Dosage: 2 DF
     Route: 065
     Dates: start: 20210609, end: 20210620
  10. TRESTAN [Concomitant]
     Indication: Decreased appetite
     Dosage: 2 DF
     Route: 065
     Dates: start: 20210607, end: 20210621
  11. LYRICA [Concomitant]
     Active Substance: PREGABALIN
     Indication: Bone pain
     Dosage: 50 MG
     Route: 065
     Dates: start: 20210607, end: 20210716
  12. MOTILIDONE [Concomitant]
     Indication: Prophylaxis
     Dosage: 3 DF
     Route: 065
     Dates: start: 20210605, end: 20210621
  13. FEMARA [Concomitant]
     Active Substance: LETROZOLE
     Indication: Breast cancer
     Dosage: 2.5 MG
     Route: 065
     Dates: start: 20210615, end: 20210713
  14. LINAGLIPTIN [Concomitant]
     Active Substance: LINAGLIPTIN
     Indication: Diabetes mellitus
     Dosage: 5 MG
     Route: 065
     Dates: start: 20210605, end: 20210621
  15. AMLODIPINE CAMSYLATE [Concomitant]
     Active Substance: AMLODIPINE CAMSYLATE
     Indication: Hypertension
     Dosage: 5 MG
     Route: 065
     Dates: start: 20210605, end: 20210621
  16. LIPITOR [Concomitant]
     Active Substance: ATORVASTATIN CALCIUM
     Indication: Hypertension
     Dosage: 10 MG
     Route: 065
     Dates: start: 20210605, end: 20210616
  17. PHOSTEN [Concomitant]
     Indication: Prophylaxis
     Dosage: 20 ML (VIAL)
     Route: 065
     Dates: start: 20210615, end: 20210615
  18. PHOSTEN [Concomitant]
     Dosage: 20 ML (VIAL)
     Route: 065
     Dates: start: 20210617, end: 20210617
  19. LASIX [Concomitant]
     Active Substance: FUROSEMIDE
     Indication: Prophylaxis
     Dosage: 20 MG
     Route: 065
     Dates: start: 20210609, end: 20210618
  20. SUPRAX [Concomitant]
     Active Substance: CEFIXIME
     Indication: Prophylaxis
     Dosage: 200 MG (DONGA)
     Route: 065
     Dates: start: 20210621, end: 20210628
  21. CADUET [Concomitant]
     Active Substance: AMLODIPINE BESYLATE\ATORVASTATIN CALCIUM
     Indication: Prophylaxis
     Dosage: 1 DF
     Route: 065
     Dates: start: 20210621
  22. CADUET [Concomitant]
     Active Substance: AMLODIPINE BESYLATE\ATORVASTATIN CALCIUM
     Indication: Diabetes mellitus
     Dosage: 10 MG
     Route: 065
     Dates: start: 20210701
  23. IRON ISOMALTOSIDE 1000 [Concomitant]
     Active Substance: IRON ISOMALTOSIDE 1000
     Indication: Prophylaxis
     Dosage: 2 DF (AMP)
     Route: 065
     Dates: start: 20210713, end: 20210713
  24. ESOMEPRAZOLE SODIUM [Concomitant]
     Active Substance: ESOMEPRAZOLE SODIUM
     Indication: Prophylaxis
     Dosage: 160 MG
     Route: 065
     Dates: start: 20210728
  25. FUROSEMIDE [Concomitant]
     Active Substance: FUROSEMIDE
     Indication: Prophylaxis
     Dosage: 730 MG
     Route: 065
     Dates: start: 20210728
  26. SMOFKABIVEN PERIPHERAL [Concomitant]
     Indication: Prophylaxis
     Dosage: 1206 ML
     Route: 065
     Dates: start: 20210728
  27. IPRATROPIUM BROMIDE [Concomitant]
     Active Substance: IPRATROPIUM BROMIDE
     Indication: Prophylaxis
     Dosage: 1000 UG
     Route: 065
     Dates: start: 20210728
  28. NORPIN [Concomitant]
     Indication: Prophylaxis
     Dosage: 32 MG
     Route: 065
     Dates: start: 20210730
  29. ALBUMIN HUMAN [Concomitant]
     Active Substance: ALBUMIN HUMAN
     Indication: Prophylaxis
     Dosage: 500 ML
     Route: 065
     Dates: start: 20210730
  30. METHYLPREDNISOLONE SODIUM SUCCINATE [Concomitant]
     Active Substance: METHYLPREDNISOLONE SODIUM SUCCINATE
     Indication: Prophylaxis
     Dosage: 30 MG
     Route: 065
     Dates: start: 20210730
  31. CEFTRIAXONE [Concomitant]
     Active Substance: CEFTRIAXONE
     Indication: Prophylaxis
     Dosage: 2 G
     Route: 065
     Dates: start: 20210730
  32. TRANEXAMIC ACID [Concomitant]
     Active Substance: TRANEXAMIC ACID
     Indication: Prophylaxis
     Dosage: 1000 MG
     Route: 065
     Dates: start: 20210730
  33. CHLORPHENIRAMINE MALEATE [Concomitant]
     Active Substance: CHLORPHENIRAMINE MALEATE
     Indication: Prophylaxis
     Dosage: 8 MG
     Route: 065
     Dates: start: 20210730
  34. ORNITHINE ASPARTATE [Concomitant]
     Active Substance: ORNITHINE ASPARTATE
     Indication: Prophylaxis
     Dosage: 2000 MG
     Route: 065
     Dates: start: 20210730
  35. ACETYLCYSTEINE [Concomitant]
     Active Substance: ACETYLCYSTEINE
     Indication: Prophylaxis
     Dosage: 6 MG
     Route: 065
     Dates: start: 20210730
  36. EVOGLIPTIN TARTRATE [Concomitant]
     Active Substance: EVOGLIPTIN TARTRATE
     Indication: Diabetes mellitus
     Dosage: 5 MG
     Route: 065
     Dates: start: 20210701

REACTIONS (1)
  - Asthenia [Fatal]

NARRATIVE: CASE EVENT DATE: 20210728
